FAERS Safety Report 16851826 (Version 1)
Quarter: 2019Q3

REPORT INFORMATION
  Report Type: Report from Study
  Country: CA (occurrence: CA)
  Receive Date: 20190925
  Receipt Date: 20190925
  Transmission Date: 20191005
  Serious: Yes (Death, Life-Threatening, Hospitalization, Other)
  Sender: FDA-Public Use
  Company Number: CA-PFIZER INC-2019410633

PATIENT
  Age: 72 Year
  Sex: Male

DRUGS (4)
  1. MEPOLIZUMAB [Suspect]
     Active Substance: MEPOLIZUMAB
     Indication: ASTHMA
     Dosage: 100 MG, UNK
     Route: 042
  2. FLAGYL [Suspect]
     Active Substance: METRONIDAZOLE\METRONIDAZOLE HYDROCHLORIDE
     Dosage: UNK
     Route: 065
  3. CIPROFLOXACIN. [Suspect]
     Active Substance: CIPROFLOXACIN
     Dosage: UNK
     Route: 065
  4. OMALIZUMAB. [Suspect]
     Active Substance: OMALIZUMAB
     Dosage: UNK
     Route: 065

REACTIONS (25)
  - Erythema [Fatal]
  - Injection site erythema [Fatal]
  - Insomnia [Fatal]
  - Adenocarcinoma [Fatal]
  - Cough [Fatal]
  - Dyspnoea [Fatal]
  - Gastrointestinal disorder [Fatal]
  - Pulmonary thrombosis [Fatal]
  - Sensory loss [Fatal]
  - Constipation [Fatal]
  - Musculoskeletal pain [Fatal]
  - Gastrointestinal cancer metastatic [Fatal]
  - Cholangiocarcinoma [Fatal]
  - Abdominal pain [Fatal]
  - Lung disorder [Fatal]
  - Hepatic lesion [Fatal]
  - Diplopia [Fatal]
  - Nonspecific reaction [Fatal]
  - Pain in extremity [Fatal]
  - Vein discolouration [Fatal]
  - Injection site swelling [Fatal]
  - Vascular pain [Fatal]
  - Pancreatic carcinoma [Fatal]
  - Neoplasm malignant [Fatal]
  - Abdominal distension [Fatal]
